FAERS Safety Report 4282149-X (Version None)
Quarter: 2004Q1

REPORT INFORMATION
  Report Type: 
  Country: None (occurrence: None)
  Receive Date: 20040130
  Receipt Date: 20040109
  Transmission Date: 20041129
  Serious: Yes (Hospitalization)
  Sender: FDA-Public Use
  Company Number: 200410137FR

PATIENT
  Age: 22 Year
  Sex: Male

DRUGS (4)
  1. LOVENOX [Suspect]
     Route: 058
     Dates: start: 20031116, end: 20031121
  2. TOPALGIC [Concomitant]
     Route: 048
     Dates: start: 20031114
  3. DI-ANTALVIC [Concomitant]
     Route: 048
     Dates: start: 20031114
  4. PROPRANOLOL HCL [Concomitant]

REACTIONS (4)
  - EOSINOPHILIA [None]
  - PRURITUS [None]
  - RASH MACULAR [None]
  - URTICARIA [None]
